FAERS Safety Report 7331593-2 (Version None)
Quarter: 2011Q1

REPORT INFORMATION
  Report Type: 
  Country: None (occurrence: None)
  Receive Date: 20110228
  Receipt Date: 20110228
  Transmission Date: 20110831
  Serious: Yes (Other)
  Sender: FDA-Public Use
  Company Number: None

PATIENT
  Sex: Male
  Weight: 37.3 kg

DRUGS (1)
  1. AMPHETAMINE SALTS TABLET 10MG COREPHARMA NDC: 64720-0132-10 [Suspect]
     Indication: ATTENTION DEFICIT/HYPERACTIVITY DISORDER
     Dosage: 10MG 1 TABLET 3 TIMES PO
     Route: 048
     Dates: start: 20110209

REACTIONS (8)
  - RESTLESSNESS [None]
  - DYSKINESIA [None]
  - TREMOR [None]
  - DECREASED APPETITE [None]
  - PRODUCT SUBSTITUTION ISSUE [None]
  - INSOMNIA [None]
  - AGITATION [None]
  - SACCADIC EYE MOVEMENT [None]
